FAERS Safety Report 7132636-1 (Version None)
Quarter: 2010Q4

REPORT INFORMATION
  Report Type: 
  Country: None (occurrence: None)
  Receive Date: 20101130
  Receipt Date: 20101130
  Transmission Date: 20110411
  Serious: Yes (Life-Threatening, Hospitalization)
  Sender: FDA-Public Use
  Company Number: None

PATIENT
  Sex: Male
  Weight: 99.7913 kg

DRUGS (1)
  1. ULORIC [Suspect]
     Indication: GOUT
     Dosage: ONE DAILY PO
     Route: 048
     Dates: start: 20101111, end: 20101123

REACTIONS (1)
  - CEREBROVASCULAR ACCIDENT [None]
